FAERS Safety Report 5701404-7 (Version None)
Quarter: 2008Q2

REPORT INFORMATION
  Report Type: 
  Country: None (occurrence: None)
  Receive Date: 20080408
  Receipt Date: 20080325
  Transmission Date: 20081010
  Serious: Yes (Hospitalization)
  Sender: FDA-Public Use
  Company Number: 2008BI000218

PATIENT
  Sex: Female

DRUGS (1)
  1. AVONEX [Suspect]
     Indication: MULTIPLE SCLEROSIS
     Dosage: 30 UG; QW; IM
     Route: 030
     Dates: start: 19970401

REACTIONS (7)
  - ADRENAL NEOPLASM [None]
  - CARDIAC DISORDER [None]
  - CHEST PAIN [None]
  - COCCIDIOIDOMYCOSIS [None]
  - HYPOTENSION [None]
  - LUNG NEOPLASM [None]
  - LYMPHADENOPATHY [None]
